FAERS Safety Report 13915357 (Version 6)
Quarter: 2020Q1

REPORT INFORMATION
  Report Type: Spontaneous
  Country: CA (occurrence: CA)
  Receive Date: 20170829
  Receipt Date: 20200312
  Transmission Date: 20200409
  Serious: Yes (Death, Life-Threatening, Hospitalization, Other)
  Sender: FDA-Public Use
  Company Number: CA-AUROBINDO-AUR-APL-2017-39428

PATIENT
  Age: 18 Year
  Sex: Female
  Weight: 63 kg

DRUGS (12)
  1. QUETIAPINE FILM-COATED TABLET [Suspect]
     Active Substance: QUETIAPINE
     Indication: PRODUCT USED FOR UNKNOWN INDICATION
     Dosage: 20 DOSAGE FORM, IN TOTAL, APPROX 20 PILLS
     Route: 048
  2. QUETIAPINE FILM-COATED TABLET [Suspect]
     Active Substance: QUETIAPINE
     Dosage: 25 MILLIGRAM, ONCE A DAY
     Route: 048
  3. CITALOPRAM [Suspect]
     Active Substance: CITALOPRAM HYDROBROMIDE
     Indication: PRODUCT USED FOR UNKNOWN INDICATION
     Dosage: 20 MG, ONCE A DAY
     Route: 065
  4. PROPOFOL. [Suspect]
     Active Substance: PROPOFOL
     Indication: PRODUCT USED FOR UNKNOWN INDICATION
     Dosage: UNK
     Route: 065
  5. ACETAMINOPHEN;CAFFEINE [Suspect]
     Active Substance: ACETAMINOPHEN\CAFFEINE
     Indication: PRODUCT USED FOR UNKNOWN INDICATION
     Dosage: 40 DOSAGE FORM, IN TOTAL
     Route: 048
  6. DIPHENHYDRAMINE. [Suspect]
     Active Substance: DIPHENHYDRAMINE
     Indication: PRODUCT USED FOR UNKNOWN INDICATION
     Dosage: UNK
     Route: 065
  7. ISONIAZID. [Concomitant]
     Active Substance: ISONIAZID
     Indication: PRODUCT USED FOR UNKNOWN INDICATION
     Dosage: 300 MG, ONCE A DAY
     Route: 065
  8. ASPIRIN. [Suspect]
     Active Substance: ASPIRIN
     Indication: PRODUCT USED FOR UNKNOWN INDICATION
     Dosage: APPROXIMATELY 15 PILLS OF UNSPECIFIED STRENGTH ; IN TOTAL
     Route: 048
  9. ACETAMINOPHEN. [Suspect]
     Active Substance: ACETAMINOPHEN
     Indication: PRODUCT USED FOR UNKNOWN INDICATION
     Dosage: APPROXIMATELY 40 PILLS OF UNSPECIFIED STRENGTH
     Route: 048
  10. ATOMOXETINE. [Concomitant]
     Active Substance: ATOMOXETINE HYDROCHLORIDE
     Indication: PRODUCT USED FOR UNKNOWN INDICATION
     Dosage: 60 MG, ONCE A DAY
     Route: 065
  11. ALCOHOL. [Suspect]
     Active Substance: ALCOHOL
     Indication: PRODUCT USED FOR UNKNOWN INDICATION
     Dosage: UNK
     Route: 048
  12. QUETIAPINE FILM-COATED TABLET [Suspect]
     Active Substance: QUETIAPINE
     Dosage: 40 DOSAGE FORM, IN TOTAL
     Route: 048

REACTIONS (35)
  - Pulmonary congestion [Fatal]
  - Multiple organ dysfunction syndrome [Fatal]
  - Atrial fibrillation [Fatal]
  - Pulmonary oedema [Fatal]
  - Hepatitis [Fatal]
  - Eosinopenia [Unknown]
  - Myocarditis [Fatal]
  - Hepatic encephalopathy [Fatal]
  - Intentional overdose [Fatal]
  - Cardiac arrest [Fatal]
  - Cardiac failure [Fatal]
  - Hepatic failure [Fatal]
  - Nausea [Unknown]
  - Face oedema [Unknown]
  - Pleural effusion [Fatal]
  - Hepatic congestion [Unknown]
  - Seizure [Unknown]
  - Agitation [Unknown]
  - Overdose [Fatal]
  - Myalgia [Fatal]
  - Encephalopathy [Fatal]
  - Suicide attempt [Fatal]
  - Effusion [Fatal]
  - Pericardial effusion [Fatal]
  - Liver injury [Fatal]
  - Completed suicide [Fatal]
  - Renal tubular necrosis [Fatal]
  - Tachycardia [Fatal]
  - Treatment noncompliance [Unknown]
  - Toxicity to various agents [Fatal]
  - Gastrointestinal disorder [Fatal]
  - Electrocardiogram ST segment elevation [Fatal]
  - Anaemia [Unknown]
  - Oedema peripheral [Unknown]
  - Oxygen saturation decreased [Unknown]
